FAERS Safety Report 5061728-6 (Version None)
Quarter: 2006Q3

REPORT INFORMATION
  Report Type: 
  Country: None (occurrence: None)
  Receive Date: 20060720
  Receipt Date: 20060704
  Transmission Date: 20061208
  Serious: Yes (Death, Life-Threatening)
  Sender: FDA-Public Use
  Company Number: 2003148540JP

PATIENT
  Age: 82 Year
  Sex: Male

DRUGS (12)
  1. IRINOTECAN HCL [Suspect]
     Indication: COLON CANCER
     Dosage: (100 MG, D1 AND D15, CYCLIC), INTRAVENOUS
     Route: 042
     Dates: start: 20030124, end: 20030204
  2. IRINOTECAN HCL [Suspect]
     Indication: METASTASES TO BONE
     Dosage: (100 MG, D1 AND D15, CYCLIC), INTRAVENOUS
     Route: 042
     Dates: start: 20030124, end: 20030204
  3. IRINOTECAN HCL [Suspect]
     Indication: METASTASES TO LIVER
     Dosage: (100 MG, D1 AND D15, CYCLIC), INTRAVENOUS
     Route: 042
     Dates: start: 20030124, end: 20030204
  4. IRINOTECAN HCL [Suspect]
     Indication: METASTASES TO LUNG
     Dosage: (100 MG, D1 AND D15, CYCLIC), INTRAVENOUS
     Route: 042
     Dates: start: 20030124, end: 20030204
  5. MITOMYCIN [Suspect]
     Indication: COLON CANCER
     Dosage: (4 MG, D1 AND D15,  CYCLIC), INTRAVENOUS
     Route: 042
     Dates: start: 20030124, end: 20030204
  6. MITOMYCIN [Suspect]
     Indication: METASTASES TO BONE
     Dosage: (4 MG, D1 AND D15,  CYCLIC), INTRAVENOUS
     Route: 042
     Dates: start: 20030124, end: 20030204
  7. MITOMYCIN [Suspect]
     Indication: METASTASES TO LIVER
     Dosage: (4 MG, D1 AND D15,  CYCLIC), INTRAVENOUS
     Route: 042
     Dates: start: 20030124, end: 20030204
  8. MITOMYCIN [Suspect]
     Indication: METASTASES TO LUNG
     Dosage: (4 MG, D1 AND D15,  CYCLIC), INTRAVENOUS
     Route: 042
     Dates: start: 20030124, end: 20030204
  9. PIPERACILLIN SODIUM [Suspect]
     Indication: DRUG USE FOR UNKNOWN INDICATION
     Dosage: (4 GRAM), INTRAVENOUS
     Route: 042
     Dates: start: 20030124, end: 20030218
  10. MORPHINE [Concomitant]
  11. CALCIUM LEVOFOLINATE (CALCIUM LEVOFOLINATE) [Concomitant]
  12. FENTANYL (FETANYL) [Concomitant]

REACTIONS (10)
  - CANDIDIASIS [None]
  - CATHETER RELATED INFECTION [None]
  - EMPHYSEMA [None]
  - INTERSTITIAL LUNG DISEASE [None]
  - LYMPHANGIOSIS CARCINOMATOSA [None]
  - MALIGNANT NEOPLASM PROGRESSION [None]
  - METASTASES TO BONE [None]
  - METASTASIS [None]
  - MULTI-ORGAN FAILURE [None]
  - PULMONARY EMBOLISM [None]
